FAERS Safety Report 7951678-7 (Version None)
Quarter: 2011Q4

REPORT INFORMATION
  Report Type: 
  Country: None (occurrence: None)
  Receive Date: 20111201
  Receipt Date: 20111122
  Transmission Date: 20120403
  Serious: Yes (Hospitalization)
  Sender: FDA-Public Use
  Company Number: US-JNJFOC-20111109872

PATIENT
  Sex: Female
  Weight: 84.82 kg

DRUGS (5)
  1. ORTHO EVRA [Suspect]
     Indication: CONTRACEPTION
     Route: 062
     Dates: start: 20111101
  2. SINGULAIR [Concomitant]
     Indication: ASTHMA
     Route: 055
  3. FLOVENT [Concomitant]
     Indication: ASTHMA
     Route: 055
     Dates: end: 20090101
  4. ORTHO EVRA [Suspect]
     Route: 062
     Dates: start: 20020101, end: 20111001
  5. ADVAIR DISKUS 100/50 [Concomitant]
     Indication: ASTHMA
     Route: 055
     Dates: start: 20090101

REACTIONS (8)
  - ROAD TRAFFIC ACCIDENT [None]
  - ASTHMA [None]
  - PRODUCT ADHESION ISSUE [None]
  - CONTUSION [None]
  - WRONG TECHNIQUE IN DRUG USAGE PROCESS [None]
  - PRESBYOPIA [None]
  - INTERVERTEBRAL DISC DISPLACEMENT [None]
  - INAPPROPRIATE SCHEDULE OF DRUG ADMINISTRATION [None]
